FAERS Safety Report 8080293-2 (Version None)
Quarter: 2012Q1

REPORT INFORMATION
  Report Type: 
  Country: None (occurrence: None)
  Receive Date: 20120130
  Receipt Date: 20120123
  Transmission Date: 20120608
  Serious: Yes (Hospitalization)
  Sender: FDA-Public Use
  Company Number: JP-JNJFOC-20120108790

PATIENT
  Age: 36 Year
  Sex: Male

DRUGS (5)
  1. MAGNESIUM SULFATE [Concomitant]
     Route: 048
  2. RISPERDAL [Suspect]
     Indication: SCHIZOPHRENIA
     Route: 048
     Dates: end: 20120119
  3. AKINETON [Concomitant]
     Route: 048
  4. LEVOMEPROMAZINE MALEATE [Concomitant]
     Route: 048
  5. NITRAZEPAM [Concomitant]
     Route: 048

REACTIONS (1)
  - WHITE BLOOD CELL COUNT DECREASED [None]
